FAERS Safety Report 10913093 (Version 2)
Quarter: 2015Q1

REPORT INFORMATION
  Report Type: Spontaneous
  Country: US (occurrence: US)
  Receive Date: 20150313
  Receipt Date: 20150327
  Transmission Date: 20150721
  Serious: Yes (Death, Other)
  Sender: FDA-Public Use
  Company Number: US-ASTRAZENECA-2015SE21408

PATIENT
  Sex: Female

DRUGS (1)
  1. FASLODEX [Suspect]
     Active Substance: FULVESTRANT
     Indication: BREAST CANCER
     Route: 030

REACTIONS (7)
  - Nausea [Unknown]
  - Malaise [Unknown]
  - Cardiac arrest [Fatal]
  - Skin discolouration [Unknown]
  - Erythema [Unknown]
  - Vomiting [Unknown]
  - Hyperhidrosis [Unknown]
